FAERS Safety Report 20003285 (Version 3)
Quarter: 2022Q2

REPORT INFORMATION
  Report Type: Spontaneous
  Country: CA (occurrence: CA)
  Receive Date: 20211027
  Receipt Date: 20220531
  Transmission Date: 20220721
  Serious: Yes (Other)
  Sender: FDA-Public Use
  Company Number: CA-PFIZER INC-202101400150

PATIENT
  Age: 68 Year
  Sex: Female
  Weight: 83.9 kg

DRUGS (15)
  1. LYRICA [Suspect]
     Active Substance: PREGABALIN
     Indication: Pain in extremity
     Dosage: 25 MG TO 100 MG
     Dates: start: 20130714, end: 20210831
  2. LYRICA [Suspect]
     Active Substance: PREGABALIN
     Indication: Pain
     Dosage: 150 MG, 2X/DAY
     Route: 048
     Dates: start: 2020, end: 202107
  3. LYRICA [Suspect]
     Active Substance: PREGABALIN
     Indication: Neuralgia
  4. CYMBALTA [Concomitant]
     Active Substance: DULOXETINE HYDROCHLORIDE
     Dosage: 60 MG
     Dates: start: 20201111
  5. ELAVIL [Concomitant]
     Active Substance: AMITRIPTYLINE HYDROCHLORIDE
     Dosage: UNK
  6. ATENOLOL [Concomitant]
     Active Substance: ATENOLOL
     Dosage: 100 MG
  7. BIO PANTOPRAZOLE [Concomitant]
     Dosage: 40 MG
  8. OLMESARTAN [Concomitant]
     Active Substance: OLMESARTAN
     Dosage: 40-12.5 MG
  9. AMITRIPTYLINE HYDROCHLORIDE [Concomitant]
     Active Substance: AMITRIPTYLINE HYDROCHLORIDE
     Dosage: 10 MG
  10. TIAZAC [Concomitant]
     Active Substance: DILTIAZEM HYDROCHLORIDE
     Dosage: 300 MG
  11. ASPIRIN [Concomitant]
     Active Substance: ASPIRIN
     Dosage: 80 MG
  12. CALCIUM CARBONATE\CHOLECALCIFEROL [Concomitant]
     Active Substance: CALCIUM CARBONATE\CHOLECALCIFEROL
     Dosage: 800 UI -500MG
  13. PRAVASTATIN [Concomitant]
     Active Substance: PRAVASTATIN
     Dosage: 40 MG
  14. OLMESARTAN MEDOXOMIL [Concomitant]
     Active Substance: OLMESARTAN MEDOXOMIL
     Dosage: 20 MG
     Dates: start: 202108
  15. OLMESARTAN MEDOXOMIL [Concomitant]
     Active Substance: OLMESARTAN MEDOXOMIL
     Dosage: 20 MG + 12.5MG
     Dates: start: 202108

REACTIONS (3)
  - Tooth injury [Not Recovered/Not Resolved]
  - Tooth erosion [Not Recovered/Not Resolved]
  - Dry mouth [Not Recovered/Not Resolved]

NARRATIVE: CASE EVENT DATE: 20210727
